FAERS Safety Report 7391058-9 (Version None)
Quarter: 2011Q1

REPORT INFORMATION
  Report Type: 
  Country: None (occurrence: None)
  Receive Date: 20110324
  Receipt Date: 20110310
  Transmission Date: 20110831
  Serious: Yes (Hospitalization)
  Sender: FDA-Public Use
  Company Number: 2011SP000603

PATIENT
  Age: 71 Year
  Sex: Male
  Weight: 125.9 kg

DRUGS (19)
  1. ARFORMOTEROL TARTRATE [Suspect]
     Indication: CHRONIC OBSTRUCTIVE PULMONARY DISEASE
     Dosage: 15 UG; BID; INHALATION
     Route: 055
     Dates: start: 20101109, end: 20110210
  2. ASPIRIN [Concomitant]
  3. ZOCOR [Concomitant]
  4. COREG [Concomitant]
  5. DARVOCET [Concomitant]
  6. ZYRTEC [Concomitant]
  7. METAMUCIL /00029101/ [Concomitant]
  8. ISOSORBIDE DINITRATE [Concomitant]
  9. PLAVIX [Concomitant]
  10. DIOVAN [Concomitant]
  11. ADVAIR HFA [Concomitant]
  12. PROZAC [Concomitant]
  13. PROSCAR [Concomitant]
  14. PROVENTIL /00139501/ [Concomitant]
  15. NOVOLIN /00030501/ [Concomitant]
  16. PROTONIX [Concomitant]
  17. TYLENOL W/ CODEINE NO. 3 [Concomitant]
  18. BUMETANIDE [Concomitant]
  19. MELOXICAM [Concomitant]

REACTIONS (13)
  - CARDIOMEGALY [None]
  - WHITE BLOOD CELL COUNT INCREASED [None]
  - CHRONIC OBSTRUCTIVE PULMONARY DISEASE [None]
  - BRAIN NATRIURETIC PEPTIDE INCREASED [None]
  - ATELECTASIS [None]
  - BLOOD UREA INCREASED [None]
  - BLOOD CREATININE INCREASED [None]
  - HAEMOGLOBIN DECREASED [None]
  - BLOOD GLUCOSE INCREASED [None]
  - HAEMATOCRIT DECREASED [None]
  - INTESTINAL PERFORATION [None]
  - BLOOD PRESSURE SYSTOLIC INCREASED [None]
  - CONDITION AGGRAVATED [None]
